FAERS Safety Report 7977824-7 (Version None)
Quarter: 2011Q4

REPORT INFORMATION
  Report Type: 
  Country: None (occurrence: None)
  Receive Date: 20111214
  Receipt Date: 20111205
  Transmission Date: 20120403
  Serious: Yes (Other)
  Sender: FDA-Public Use
  Company Number: US-AMGEN-USASP2011064571

PATIENT
  Age: 65 Year
  Sex: Female

DRUGS (1)
  1. ENBREL [Suspect]
     Indication: RHEUMATOID ARTHRITIS
     Dosage: 50 MG, QWK
     Dates: start: 20110703, end: 20111001

REACTIONS (4)
  - SKIN MASS [None]
  - VISUAL IMPAIRMENT [None]
  - PITUITARY ENLARGEMENT [None]
  - HYPOTHYROIDISM [None]
